FAERS Safety Report 21886146 (Version 1)
Quarter: 2023Q1

REPORT INFORMATION
  Report Type: Spontaneous
  Country: US (occurrence: None)
  Receive Date: 20230118
  Receipt Date: 20230118
  Transmission Date: 20230417
  Serious: No
  Sender: FDA-Public Use
  Company Number: None

PATIENT
  Age: 57 Year
  Sex: Female
  Weight: 113.4 kg

DRUGS (17)
  1. IBRANCE [Suspect]
     Active Substance: PALBOCICLIB
     Indication: Breast cancer female
     Dosage: OTHER FREQUENCY : 21D ON 7D OFF;?
     Route: 048
  2. ELIQUIS [Suspect]
     Active Substance: APIXABAN
     Indication: Breast cancer female
     Dosage: FREQUENCY : TWICE A DAY;?
     Route: 048
  3. OMEPRAZOLE [Concomitant]
     Active Substance: OMEPRAZOLE
  4. FAMOTIDINE [Concomitant]
     Active Substance: FAMOTIDINE
  5. FASLODEX [Concomitant]
     Active Substance: FULVESTRANT
  6. FULVESTRANT [Concomitant]
     Active Substance: FULVESTRANT
  7. VITAMIN D3 [Concomitant]
     Active Substance: CHOLECALCIFEROL
  8. LEXAPRO [Concomitant]
     Active Substance: ESCITALOPRAM OXALATE
  9. LISINOPRIL [Concomitant]
     Active Substance: LISINOPRIL
  10. MIRTAZAPINE [Concomitant]
     Active Substance: MIRTAZAPINE
  11. NARCAN [Concomitant]
     Active Substance: NALOXONE HYDROCHLORIDE
  12. OMEPRAZOLE [Concomitant]
     Active Substance: OMEPRAZOLE
  13. ONDANSETRON [Concomitant]
     Active Substance: ONDANSETRON
  14. OXYCODONE [Concomitant]
     Active Substance: OXYCODONE
  15. PREDNISONE [Concomitant]
     Active Substance: PREDNISONE
  16. TIZANIDINE [Concomitant]
     Active Substance: TIZANIDINE
  17. TRAMADOL [Concomitant]
     Active Substance: TRAMADOL

REACTIONS (1)
  - Drug ineffective [None]
